FAERS Safety Report 26054119 (Version 1)
Quarter: 2025Q4

REPORT INFORMATION
  Report Type: Spontaneous
  Country: US (occurrence: US)
  Receive Date: 20251117
  Receipt Date: 20251117
  Transmission Date: 20260118
  Serious: Yes (Hospitalization, Other)
  Sender: INCYTE
  Company Number: US-INCYTE CORPORATION-2025IN012656

PATIENT
  Age: 74 Year

DRUGS (2)
  1. JAKAFI [Suspect]
     Active Substance: RUXOLITINIB
     Indication: Polycythaemia vera
     Dosage: UNK
     Route: 065
  2. JAKAFI [Suspect]
     Active Substance: RUXOLITINIB
     Dosage: UNK
     Route: 065

REACTIONS (5)
  - Disseminated coccidioidomycosis [Recovering/Resolving]
  - Immunodeficiency [Unknown]
  - Pneumonia [Recovered/Resolved]
  - Coccidioidomycosis [Recovered/Resolved]
  - Candida test positive [Unknown]
